FAERS Safety Report 8877990 (Version 1)
Quarter: 2012Q4

REPORT INFORMATION
  Report Type: Spontaneous
  Country: GB (occurrence: None)
  Receive Date: 20121026
  Receipt Date: 20121026
  Transmission Date: 20130627
  Serious: Yes (Life-Threatening)
  Sender: FDA-Public Use
  Company Number: AUR-APL-2012-04517

PATIENT
  Age: 89 Year
  Sex: Male

DRUGS (6)
  1. RISPERIDONE (RISPERIDONE) [Suspect]
     Indication: DRUG USE FOR UNKNOWN INDICATION
     Dosage: (1 mg,2 in 1 D)
     Route: 048
     Dates: start: 20120906, end: 20120907
  2. RISPERIDONE (RISPERIDONE) [Suspect]
     Indication: DRUG USE FOR UNKNOWN INDICATION
  3. DONEPEZIL (DONEPEZIL) [Concomitant]
  4. LORAZEPAM (LORAZEPAM) [Concomitant]
  5. MESALAZINE (MESALAZINE) [Concomitant]
  6. ZOPICLONE (ZOPICLONE) [Concomitant]

REACTIONS (2)
  - Unresponsive to stimuli [None]
  - Electrocardiogram QT prolonged [None]
